FAERS Safety Report 8757964 (Version 1)
Quarter: 2012Q4

REPORT INFORMATION
  Report Type: 
  Country: US (occurrence: US)
  Receive Date: 20120828
  Receipt Date: 20120828
  Transmission Date: 20130627
  Serious: No
  Sender: FDA-Public Use
  Company Number: US-PFIZER INC-2012205818

PATIENT
  Sex: Female

DRUGS (1)
  1. ADVIL [Suspect]
     Indication: DENTAL OPERATION
     Dosage: 600 mg, every 4 hrs
     Dates: start: 201208, end: 20120820

REACTIONS (2)
  - Asthenia [Unknown]
  - Dyspnoea [Unknown]
